FAERS Safety Report 12756154 (Version 1)
Quarter: 2016Q3

REPORT INFORMATION
  Report Type: Spontaneous
  Country: US (occurrence: US)
  Receive Date: 20160916
  Receipt Date: 20160916
  Transmission Date: 20161109
  Serious: No
  Sender: FDA-Public Use
  Company Number: US-ASTRAZENECA-2016SE80501

PATIENT
  Sex: Female

DRUGS (2)
  1. MUSCLE RELAXER [Suspect]
     Active Substance: UNSPECIFIED INGREDIENT
     Route: 065
  2. BRILINTA [Suspect]
     Active Substance: TICAGRELOR
     Indication: ACUTE CORONARY SYNDROME
     Route: 048

REACTIONS (1)
  - Feeling abnormal [Unknown]
